FAERS Safety Report 24273297 (Version 1)
Quarter: 2024Q3

REPORT INFORMATION
  Report Type: Spontaneous
  Country: DE (occurrence: DE)
  Receive Date: 20240902
  Receipt Date: 20240902
  Transmission Date: 20241016
  Serious: Yes (Other)
  Sender: NOVARTIS
  Company Number: DE-UCBSA-2024041560

PATIENT
  Age: 24 Year
  Sex: Female

DRUGS (8)
  1. EVEROLIMUS [Suspect]
     Active Substance: EVEROLIMUS
     Indication: Seizure
     Dosage: 5 MG
     Route: 065
  2. FENFLURAMINE HYDROCHLORIDE [Suspect]
     Active Substance: FENFLURAMINE HYDROCHLORIDE
     Indication: Status epilepticus
     Dosage: FFA DOSAGE WAS INCREASED TO A PEAK DOSE OF 42 MG/DAY WITHIN 8 DAYS, WHICH EQUALLED AROUND 0,7MG/KG (
     Route: 065
  3. FENFLURAMINE HYDROCHLORIDE [Suspect]
     Active Substance: FENFLURAMINE HYDROCHLORIDE
     Indication: Off label use
     Dosage: (ROUTE: NASOGASTRIC)
     Route: 065
     Dates: start: 2022
  4. FENFLURAMINE HYDROCHLORIDE [Suspect]
     Active Substance: FENFLURAMINE HYDROCHLORIDE
     Dosage: 21 MG, QD ((ROUTE: NASOGASTRIC)
     Route: 065
  5. LACOSAMIDE [Suspect]
     Active Substance: LACOSAMIDE
     Indication: Off label use
     Dosage: 400 MG, QD (ADDITIONAL DOSES OF LCM)
     Route: 065
  6. LACOSAMIDE [Suspect]
     Active Substance: LACOSAMIDE
     Indication: Seizure
  7. PHENOBARBITAL [Suspect]
     Active Substance: PHENOBARBITAL
     Indication: Status epilepticus
     Dosage: 200 MG, QD
     Route: 065
  8. TOPIRAMATE [Suspect]
     Active Substance: TOPIRAMATE
     Indication: Status epilepticus
     Dosage: 900 MG, QD
     Route: 065

REACTIONS (2)
  - Seizure [Unknown]
  - Pyrexia [Not Recovered/Not Resolved]
